FAERS Safety Report 4545089-4 (Version None)
Quarter: 2005Q1

REPORT INFORMATION
  Report Type: 
  Country: None (occurrence: None)
  Receive Date: 20050103
  Receipt Date: 20041220
  Transmission Date: 20050727
  Serious: Yes (Hospitalization)
  Sender: FDA-Public Use
  Company Number: 2004011022

PATIENT
  Age: 48 Year
  Sex: Female

DRUGS (1)
  1. ZITHROMAX [Suspect]
     Indication: SINUSITIS
     Dosage: 500 MG (1 I N 1 D)
     Dates: start: 20040101, end: 20040101

REACTIONS (6)
  - BLOOD CHOLESTEROL INCREASED [None]
  - FATIGUE [None]
  - MYALGIA [None]
  - NAUSEA [None]
  - RESPIRATORY DISORDER [None]
  - TACHYCARDIA [None]
